FAERS Safety Report 25116550 (Version 1)
Quarter: 2025Q1

REPORT INFORMATION
  Report Type: Spontaneous
  Country: US (occurrence: US)
  Receive Date: 20250325
  Receipt Date: 20250325
  Transmission Date: 20250409
  Serious: Yes (Hospitalization, Disabling)
  Sender: APOTEX
  Company Number: US-APOTEX-2025AP003518

PATIENT
  Age: 55 Year
  Sex: Female

DRUGS (1)
  1. KETOROLAC [Suspect]
     Active Substance: KETOROLAC TROMETHAMINE
     Indication: Back pain
     Route: 030

REACTIONS (1)
  - Osteoarthritis [Unknown]
